FAERS Safety Report 8718264 (Version 3)
Quarter: 2012Q4

REPORT INFORMATION
  Report Type: 
  Country: BE (occurrence: BE)
  Receive Date: 20120810
  Receipt Date: 20121114
  Transmission Date: 20130627
  Serious: Yes (Hospitalization, Other)
  Sender: FDA-Public Use
  Company Number: BE-ELI_LILLY_AND_COMPANY-BE201208002697

PATIENT
  Sex: Male
  Weight: 75 kg

DRUGS (5)
  1. CIALIS [Suspect]
     Indication: ERECTILE DYSFUNCTION
     Dosage: 20 mg, prn
     Route: 048
     Dates: start: 201110
  2. CIALIS [Suspect]
     Dosage: 10 mg, prn
     Route: 048
  3. ZOCOR [Concomitant]
     Indication: HYPERLIPIDAEMIA
     Dosage: 20 DF, qd
     Route: 048
     Dates: start: 2007
  4. VITAMINS [Concomitant]
     Indication: VITAMIN B12 DECREASED
     Dosage: 1 DF, qd
     Route: 048
     Dates: start: 2007
  5. OMEPRAZOLE [Concomitant]
     Indication: BARRETT^S OESOPHAGUS
     Dosage: 20 DF, qd
     Dates: start: 2001

REACTIONS (2)
  - Muscle contractions involuntary [Not Recovered/Not Resolved]
  - Myalgia [Not Recovered/Not Resolved]
